FAERS Safety Report 8359805-7 (Version None)
Quarter: 2012Q2

REPORT INFORMATION
  Report Type: 
  Country: None (occurrence: None)
  Receive Date: 20120514
  Receipt Date: 20120514
  Transmission Date: 20120825
  Serious: Yes (Hospitalization)
  Sender: FDA-Public Use
  Company Number: None

PATIENT
  Sex: Female

DRUGS (2)
  1. PEG-INTRON [Suspect]
     Dosage: 120MCG ONCE WEEKLY SUB-Q
     Route: 058
     Dates: start: 20120103, end: 20120510
  2. RIBASPHERE [Suspect]
     Dosage: 400/600MG BID PO
     Route: 048
     Dates: start: 20120103, end: 20120510

REACTIONS (2)
  - ANAEMIA [None]
  - CEREBROVASCULAR ACCIDENT [None]
